FAERS Safety Report 6188864-5 (Version None)
Quarter: 2009Q2

REPORT INFORMATION
  Report Type: 
  Country: None (occurrence: None)
  Receive Date: 20090513
  Receipt Date: 20090428
  Transmission Date: 20091009
  Serious: Yes (Other)
  Sender: FDA-Public Use
  Company Number: US-GENENTECH-282581

PATIENT
  Age: 48 Year
  Sex: Male

DRUGS (3)
  1. ACTIVASE [Suspect]
     Indication: EMBOLISM VENOUS
     Dosage: 25 MG, UNK
  2. ACTIVASE [Suspect]
     Dosage: 1 MG/HR, UNK
  3. HEPARIN [Suspect]
     Indication: EMBOLISM VENOUS
     Dosage: UNK
     Route: 042

REACTIONS (6)
  - CHILLS [None]
  - DRUG INEFFECTIVE [None]
  - HYPOTENSION [None]
  - SALMONELLA SEPSIS [None]
  - SINUS TACHYCARDIA [None]
  - VENTRICULAR HYPOKINESIA [None]
